FAERS Safety Report 4534457-2 (Version None)
Quarter: 2004Q4

REPORT INFORMATION
  Report Type: 
  Country: None (occurrence: None)
  Receive Date: 20041214
  Receipt Date: 20040823
  Transmission Date: 20050328
  Serious: No
  Sender: FDA-Public Use
  Company Number: USA040876228

PATIENT
  Age: 66 Year
  Sex: Male
  Weight: 100 kg

DRUGS (6)
  1. CIALIS [Suspect]
     Dosage: 20 MG
     Dates: start: 20040816
  2. TOPROL-XL [Concomitant]
  3. GLUCOROL (GLIPIZIDE) [Concomitant]
  4. PROTONIX [Concomitant]
  5. IBUPROFEN [Concomitant]
  6. EFFEXOR [Concomitant]

REACTIONS (1)
  - DRUG INEFFECTIVE [None]
